FAERS Safety Report 13335937 (Version 2)
Quarter: 2017Q1

REPORT INFORMATION
  Report Type: Spontaneous
  Country: IT (occurrence: IT)
  Receive Date: 20170314
  Receipt Date: 20170328
  Transmission Date: 20170428
  Serious: Yes (Hospitalization, Other)
  Sender: FDA-Public Use
  Company Number: IT-GILEAD-2017-0260607

PATIENT
  Age: 70 Year
  Sex: Male

DRUGS (2)
  1. ZYDELIG [Suspect]
     Active Substance: IDELALISIB
     Indication: CHRONIC LYMPHOCYTIC LEUKAEMIA
     Dosage: 150 MG, BID
     Route: 048
     Dates: start: 20160101, end: 20170228
  2. BACTRIM [Concomitant]
     Active Substance: SULFAMETHOXAZOLE\TRIMETHOPRIM
     Indication: ANTIFUNGAL PROPHYLAXIS

REACTIONS (4)
  - Neutropenia [Unknown]
  - Influenza [Unknown]
  - Chronic lymphocytic leukaemia recurrent [Unknown]
  - Pneumonia [Recovering/Resolving]

NARRATIVE: CASE EVENT DATE: 2017
